FAERS Safety Report 22120071 (Version 1)
Quarter: 2023Q1

REPORT INFORMATION
  Report Type: Report from Study
  Country: US (occurrence: None)
  Receive Date: 20230321
  Receipt Date: 20230321
  Transmission Date: 20230418
  Serious: Yes (Death)
  Sender: FDA-Public Use
  Company Number: US-ROCHE-3313499

PATIENT

DRUGS (2)
  1. ATEZOLIZUMAB [Suspect]
     Active Substance: ATEZOLIZUMAB
     Indication: Neoplasm
     Dosage: OVER 60 MINUTES ON DAY 1 ?DATE OF LAST DOSE: 07/JAN/2020?DATE OFF STUDY: 29/JAN/2020
     Route: 041
     Dates: start: 20181214
  2. BEVACIZUMAB [Suspect]
     Active Substance: BEVACIZUMAB
     Indication: Neoplasm
     Dosage: OVER 60 MINUTES ON DAY 1?DATE OF LAST DOSE: 07/JAN/2020?DATE OFF STUDY: 29/JAN/2020
     Route: 042
     Dates: start: 20181214

REACTIONS (2)
  - Disease progression [Unknown]
  - Death [Fatal]
